FAERS Safety Report 13426618 (Version 8)
Quarter: 2018Q4

REPORT INFORMATION
  Report Type: Spontaneous
  Country: US (occurrence: US)
  Receive Date: 20170411
  Receipt Date: 20181010
  Transmission Date: 20190204
  Serious: Yes (Hospitalization, Other)
  Sender: FDA-Public Use
  Company Number: US-WEST-WARD PHARMACEUTICALS CORP.-US-H14001-17-00966

PATIENT
  Age: 34 Year
  Sex: Female
  Weight: 69 kg

DRUGS (3)
  1. ASP2215 [Suspect]
     Active Substance: GILTERITINIB
     Indication: ACUTE MYELOID LEUKAEMIA
     Route: 048
     Dates: start: 20170224, end: 20170306
  2. CYTARABINE. [Suspect]
     Active Substance: CYTARABINE
     Indication: ACUTE MYELOID LEUKAEMIA
     Route: 042
     Dates: start: 20170221, end: 20170227
  3. IDARUBICIN [Suspect]
     Active Substance: IDARUBICIN
     Indication: ACUTE MYELOID LEUKAEMIA
     Route: 042
     Dates: start: 20170221, end: 20170223

REACTIONS (7)
  - Menorrhagia [Recovered/Resolved]
  - Sepsis [Recovered/Resolved]
  - Acute kidney injury [Recovered/Resolved]
  - Small intestinal obstruction [Recovered/Resolved]
  - Colitis [Recovered/Resolved]
  - Gastric haemorrhage [Recovered/Resolved]
  - Dieulafoy^s vascular malformation [Recovered/Resolved]

NARRATIVE: CASE EVENT DATE: 20170303
